FAERS Safety Report 7202788-3 (Version None)
Quarter: 2010Q4

REPORT INFORMATION
  Report Type: 
  Country: None (occurrence: None)
  Receive Date: 20101229
  Receipt Date: 20100908
  Transmission Date: 20110411
  Serious: No
  Sender: FDA-Public Use
  Company Number: US-BAUSCH-2010BL005057

PATIENT
  Age: 40 Year
  Sex: Female

DRUGS (6)
  1. BESIVANCE [Suspect]
     Indication: PHOTOREFRACTIVE KERATECTOMY
     Route: 047
     Dates: start: 20100827, end: 20100903
  2. BESIVANCE [Suspect]
     Indication: OFF LABEL USE
     Route: 047
     Dates: start: 20100827, end: 20100903
  3. AVALIDE [Concomitant]
  4. VITAMIN B-12 [Concomitant]
  5. LOTEMAX [Concomitant]
  6. PRESERVATIVE FREE ARTIFICIAL TEARS [Concomitant]

REACTIONS (1)
  - IMPAIRED HEALING [None]
